FAERS Safety Report 6084790-0 (Version None)
Quarter: 2009Q1

REPORT INFORMATION
  Report Type: 
  Country: None (occurrence: None)
  Receive Date: 20090217
  Receipt Date: 20090209
  Transmission Date: 20090719
  Serious: Yes (Other)
  Sender: FDA-Public Use
  Company Number: 171748

PATIENT
  Sex: Female
  Weight: 1.04 kg

DRUGS (3)
  1. CARBOPLATIN           INTRAVENOUS INFUSION (CARBOPLATIN) [Suspect]
     Dosage: AUC 5 (DAY 1), 1 CYCLE TRANSPLACENTAL
     Route: 064
  2. GEMCITABINE 1G POWDER FOR SOLUTION FOR INFUSION (GEMCITABINE) [Suspect]
     Dosage: 1000 MG/M2, TRANSPLACENTAL
     Route: 064
  3. (CORTICOSTEROIDS) [Concomitant]

REACTIONS (9)
  - CAESAREAN SECTION [None]
  - CONGENITAL ANAEMIA [None]
  - INCREASED BRONCHIAL SECRETION [None]
  - LUNG CONSOLIDATION [None]
  - LUNG DISORDER [None]
  - MATERNAL DRUGS AFFECTING FOETUS [None]
  - NEONATAL DISORDER [None]
  - PREMATURE BABY [None]
  - STAPHYLOCOCCAL SEPSIS [None]
